FAERS Safety Report 21609911 (Version 1)
Quarter: 2022Q4

REPORT INFORMATION
  Report Type: Spontaneous
  Country: US (occurrence: None)
  Receive Date: 20221117
  Receipt Date: 20221117
  Transmission Date: 20230112
  Serious: Yes (Hospitalization, Other)
  Sender: FDA-Public Use
  Company Number: None

PATIENT
  Age: 73 Year
  Sex: Female

DRUGS (7)
  1. PRAVASTATIN SODIUM [Suspect]
     Active Substance: PRAVASTATIN SODIUM
     Dosage: FREQUENCY : DAILY;?
     Route: 048
     Dates: start: 20210317
  2. BUMETANIDE [Suspect]
     Active Substance: BUMETANIDE
     Dosage: OTHER FREQUENCY : 2 MG QAM 1 MG QPM;?
     Route: 048
     Dates: start: 20210628
  3. TACROLIMUS [Concomitant]
     Active Substance: TACROLIMUS
     Dates: start: 20210317
  4. vitamin d 50,000 units [Concomitant]
     Dates: start: 20210514
  5. LANSOPRAZOLE [Concomitant]
     Active Substance: LANSOPRAZOLE
     Dates: start: 20210528
  6. ferrous sulfate 325 mg [Concomitant]
     Dates: start: 20210528
  7. PREDNISONE [Concomitant]
     Active Substance: PREDNISONE
     Dates: start: 20220330

REACTIONS (2)
  - Peripheral swelling [None]
  - Fall [None]

NARRATIVE: CASE EVENT DATE: 20221108
